FAERS Safety Report 15037445 (Version 2)
Quarter: 2019Q1

REPORT INFORMATION
  Report Type: Spontaneous
  Country: ES (occurrence: ES)
  Receive Date: 20180620
  Receipt Date: 20190325
  Transmission Date: 20190417
  Serious: Yes (Other)
  Sender: FDA-Public Use
  Company Number: ES-JNJFOC-20180620005

PATIENT
  Sex: Male

DRUGS (2)
  1. ABIRATERONE ACETATE. [Suspect]
     Active Substance: ABIRATERONE ACETATE
     Indication: PROSTATE CANCER METASTATIC
     Route: 048
  2. ENZALUTAMIDE [Suspect]
     Active Substance: ENZALUTAMIDE
     Indication: PROSTATE CANCER METASTATIC
     Route: 065

REACTIONS (9)
  - Cardiac disorder [Unknown]
  - Neurological symptom [Unknown]
  - Asthenia [Unknown]
  - Blood cholesterol increased [Unknown]
  - Hot flush [Unknown]
  - Liver disorder [Unknown]
  - Fluid retention [Unknown]
  - Hypertension [Unknown]
  - Gastrointestinal disorder [Unknown]
